FAERS Safety Report 5947341-4 (Version None)
Quarter: 2008Q4

REPORT INFORMATION
  Report Type: 
  Country: None (occurrence: None)
  Receive Date: 20081110
  Receipt Date: 20081029
  Transmission Date: 20090506
  Serious: Yes (Other)
  Sender: FDA-Public Use
  Company Number: AU-PFIZER INC-2008091754

PATIENT
  Age: 55 Year
  Sex: Male

DRUGS (4)
  1. CHAMPIX [Suspect]
  2. ZOLOFT [Suspect]
     Indication: ANXIETY
  3. GABAPENTIN [Suspect]
     Indication: NEURALGIA
  4. VALIUM [Concomitant]
     Indication: ANXIETY

REACTIONS (6)
  - ANXIETY [None]
  - CONFUSIONAL STATE [None]
  - DYSPNOEA [None]
  - HYPOREFLEXIA [None]
  - LETHARGY [None]
  - MEMORY IMPAIRMENT [None]
